FAERS Safety Report 10256689 (Version 2)
Quarter: 2014Q2

REPORT INFORMATION
  Report Type: Report from Study
  Country: AR (occurrence: AR)
  Receive Date: 20140624
  Receipt Date: 20140624
  Transmission Date: 20141212
  Serious: Yes (Disabling)
  Sender: FDA-Public Use
  Company Number: AR-ABBVIE-13P-007-1177916-00

PATIENT
  Sex: Male

DRUGS (1)
  1. HUMIRA [Suspect]
     Indication: RHEUMATOID ARTHRITIS
     Route: 058
     Dates: start: 20120301, end: 20131203

REACTIONS (5)
  - Arteriosclerosis [Recovered/Resolved with Sequelae]
  - Cardiovascular disorder [Unknown]
  - Peripheral swelling [Unknown]
  - Dry gangrene [Not Recovered/Not Resolved]
  - Localised infection [Not Recovered/Not Resolved]
